FAERS Safety Report 9028965 (Version 1)
Quarter: 2013Q1

REPORT INFORMATION
  Report Type: Spontaneous
  Country: US (occurrence: US)
  Receive Date: 20130124
  Receipt Date: 20130124
  Transmission Date: 20140127
  Serious: Yes (Other)
  Sender: FDA-Public Use
  Company Number: US-PFIZER INC-2013023727

PATIENT
  Sex: Female

DRUGS (6)
  1. CELEBREX [Suspect]
     Dosage: UNK
  2. METHOTREXATE SODIUM [Suspect]
     Dosage: UNK
  3. SULFASALAZINE [Suspect]
     Dosage: UNK
  4. PREDNISONE [Suspect]
     Dosage: UNK
  5. FIORINAL WITH CODEINE [Suspect]
     Dosage: UNK
  6. RESTASIS [Suspect]
     Dosage: UNK

REACTIONS (2)
  - Hallucination, visual [Unknown]
  - Tinnitus [Unknown]
